FAERS Safety Report 6041590-5 (Version None)
Quarter: 2009Q1

REPORT INFORMATION
  Report Type: 
  Country: None (occurrence: None)
  Receive Date: 20090116
  Receipt Date: 20081023
  Transmission Date: 20090719
  Serious: Yes (Other)
  Sender: FDA-Public Use
  Company Number: US-BRISTOL-MYERS SQUIBB COMPANY-14382766

PATIENT
  Age: 8 Year
  Sex: Male

DRUGS (3)
  1. ABILIFY [Suspect]
  2. DEPAKOTE [Suspect]
  3. DITROPAN [Suspect]

REACTIONS (2)
  - CONVULSION [None]
  - EXTRAPYRAMIDAL DISORDER [None]
